FAERS Safety Report 5901614-X (Version None)
Quarter: 2008Q3

REPORT INFORMATION
  Report Type: 
  Country: None (occurrence: None)
  Receive Date: 20080926
  Receipt Date: 20080926
  Transmission Date: 20090109
  Serious: Yes (Other)
  Sender: FDA-Public Use
  Company Number: None

PATIENT
  Age: 56 Year
  Sex: Female
  Weight: 59.4212 kg

DRUGS (1)
  1. CHANTIX [Suspect]
     Indication: SMOKING CESSATION THERAPY
     Dosage: 1 TO 2 -TOTAL 0.5MG TO 2MG- DAILY PO
     Route: 048
     Dates: start: 20071025, end: 20080125

REACTIONS (18)
  - ANOREXIA [None]
  - BACK PAIN [None]
  - CEREBRAL DISORDER [None]
  - CHEST DISCOMFORT [None]
  - DEPRESSION [None]
  - FEELING ABNORMAL [None]
  - FLIGHT OF IDEAS [None]
  - GENERALISED ANXIETY DISORDER [None]
  - HYPERHIDROSIS [None]
  - HYPOAESTHESIA [None]
  - HYPOAESTHESIA ORAL [None]
  - NECK PAIN [None]
  - PALPITATIONS [None]
  - PARAESTHESIA [None]
  - PARAESTHESIA ORAL [None]
  - SLUGGISHNESS [None]
  - STRESS [None]
  - SUICIDAL IDEATION [None]
